FAERS Safety Report 5972200-0 (Version None)
Quarter: 2008Q4

REPORT INFORMATION
  Report Type: 
  Country: None (occurrence: None)
  Receive Date: 20081201
  Receipt Date: 20071031
  Transmission Date: 20090506
  Serious: No
  Sender: FDA-Public Use
  Company Number: US-TEVA-163490USA

PATIENT
  Age: 52 Year
  Sex: Male

DRUGS (3)
  1. SALBUTAMOL SULFATE INHALATION, 0.09 MG [Suspect]
     Dosage: 2 PUFFS, 3-4 TIMES PER DAY
     Route: 055
     Dates: start: 20070801
  2. CLONIDINE [Concomitant]
  3. LITHIUM CARBONATE [Concomitant]

REACTIONS (1)
  - DYSPHONIA [None]
